FAERS Safety Report 6027011-7 (Version None)
Quarter: 2009Q1

REPORT INFORMATION
  Report Type: 
  Country: None (occurrence: None)
  Receive Date: 20090105
  Receipt Date: 20081203
  Transmission Date: 20090719
  Serious: No
  Sender: FDA-Public Use
  Company Number: US-BAYER-200831067NA

PATIENT
  Age: 20 Year
  Sex: Female

DRUGS (1)
  1. MIRENA [Suspect]
     Indication: DRUG USE FOR UNKNOWN INDICATION
     Route: 015
     Dates: start: 20060401

REACTIONS (8)
  - AMENORRHOEA [None]
  - BREAST DISCHARGE [None]
  - BREAST ENLARGEMENT [None]
  - BREAST SWELLING [None]
  - BREAST TENDERNESS [None]
  - FATIGUE [None]
  - NAUSEA [None]
  - POLLAKIURIA [None]
